FAERS Safety Report 21287619 (Version 1)
Quarter: 2022Q3

REPORT INFORMATION
  Report Type: Report from Study
  Country: CO (occurrence: CO)
  Receive Date: 20220902
  Receipt Date: 20220902
  Transmission Date: 20221027
  Serious: Yes (Hospitalization)
  Sender: FDA-Public Use
  Company Number: CO-ABBVIE-22K-036-4524641-00

PATIENT
  Age: 20 Year
  Sex: Male
  Weight: 85 kg

DRUGS (1)
  1. SKYRIZI [Suspect]
     Active Substance: RISANKIZUMAB-RZAA
     Indication: Psoriasis
     Route: 058
     Dates: start: 20220210

REACTIONS (2)
  - Urinary tract infection [Recovering/Resolving]
  - Tonsillitis bacterial [Recovering/Resolving]

NARRATIVE: CASE EVENT DATE: 20220827
